FAERS Safety Report 15491676 (Version 1)
Quarter: 2018Q4

REPORT INFORMATION
  Report Type: Report from Study
  Country: DE (occurrence: DE)
  Receive Date: 20181012
  Receipt Date: 20181012
  Transmission Date: 20190205
  Serious: Yes (Other)
  Sender: FDA-Public Use
  Company Number: DE-ROCHE-2197839

PATIENT
  Sex: Male

DRUGS (7)
  1. RANIBIZUMAB. [Suspect]
     Active Substance: RANIBIZUMAB
     Dosage: IN LEFT EYE
     Route: 031
     Dates: start: 20161021
  2. RANIBIZUMAB. [Suspect]
     Active Substance: RANIBIZUMAB
     Dosage: IN LEFT EYE
     Route: 031
     Dates: start: 20161222
  3. RANIBIZUMAB. [Suspect]
     Active Substance: RANIBIZUMAB
     Dosage: IN LEFT EYE
     Route: 031
     Dates: start: 20170216
  4. RANIBIZUMAB. [Suspect]
     Active Substance: RANIBIZUMAB
     Dosage: IN LEFT EYE
     Route: 031
     Dates: start: 20160923
  5. RANIBIZUMAB. [Suspect]
     Active Substance: RANIBIZUMAB
     Dosage: IN LEFT EYE
     Route: 031
     Dates: start: 20161118
  6. RANIBIZUMAB. [Suspect]
     Active Substance: RANIBIZUMAB
     Dosage: IN LEFT EYE
     Route: 031
     Dates: start: 20170419
  7. RANIBIZUMAB. [Suspect]
     Active Substance: RANIBIZUMAB
     Indication: NEOVASCULAR AGE-RELATED MACULAR DEGENERATION
     Dosage: IN LEFT EYE
     Route: 031
     Dates: start: 20160826

REACTIONS (1)
  - Macular oedema [Recovered/Resolved]

NARRATIVE: CASE EVENT DATE: 20170419
